APPROVED DRUG PRODUCT: LORAZ
Active Ingredient: LORAZEPAM
Strength: 2MG
Dosage Form/Route: TABLET;ORAL
Application: A070202 | Product #001
Applicant: QUANTUM PHARMICS LTD
Approved: Aug 9, 1985 | RLD: No | RS: No | Type: DISCN